FAERS Safety Report 6838764-X (Version None)
Quarter: 2010Q3

REPORT INFORMATION
  Report Type: 
  Country: None (occurrence: None)
  Receive Date: 20100713
  Receipt Date: 20070606
  Transmission Date: 20110219
  Serious: No
  Sender: FDA-Public Use
  Company Number: US-PFIZER INC-2007045151

PATIENT
  Sex: Male

DRUGS (3)
  1. CHANTIX [Suspect]
     Indication: SMOKING CESSATION THERAPY
     Dates: start: 20070501, end: 20070526
  2. ATENOLOL [Concomitant]
     Indication: BLOOD PRESSURE
     Dosage: 1 PILL
  3. NIFEDICAL [Concomitant]
     Indication: BLOOD PRESSURE
     Dosage: 1 PILL

REACTIONS (2)
  - ABDOMINAL PAIN UPPER [None]
  - ULCER [None]
